FAERS Safety Report 6024233-6 (Version None)
Quarter: 2008Q4

REPORT INFORMATION
  Report Type: 
  Country: None (occurrence: None)
  Receive Date: 20081229
  Receipt Date: 20081222
  Transmission Date: 20090506
  Serious: Yes (Death, Life-Threatening, Hospitalization)
  Sender: FDA-Public Use
  Company Number: CLOF-1000308

PATIENT
  Age: 62 Year
  Sex: Female

DRUGS (13)
  1. CLOFARABINE OR PLACEBO (CODE NOT BROKEN) [Suspect]
     Indication: ACUTE LEUKAEMIA
     Dosage: BLINDED INFORMATION WITHHELD
     Dates: start: 20080812, end: 20080816
  2. CLOFARABINE OR PLACEBO (CODE NOT BROKEN) [Suspect]
     Indication: ACUTE LEUKAEMIA
     Dosage: BLINDED INFORMATION WITHHELD
     Dates: start: 20080829, end: 20080902
  3. CYTARABINE [Suspect]
     Indication: ACUTE LEUKAEMIA
     Dosage: 1 G/M2, QDX5, INTRAVENOUS
     Route: 042
     Dates: start: 20080813, end: 20080817
  4. CYTARABINE [Suspect]
     Indication: ACUTE LEUKAEMIA
     Dosage: 1 G/M2, QDX5, INTRAVENOUS
     Route: 042
     Dates: start: 20080829, end: 20080902
  5. AMIODARONE HCL [Concomitant]
  6. COLACE (DOCUSATE SODIUM) [Concomitant]
  7. LASIX [Concomitant]
  8. SPORANOX [Concomitant]
  9. LEVAQUIN [Concomitant]
  10. PRINIVIL [Concomitant]
  11. LOPRESSOR [Concomitant]
  12. PROTONIX (PANTOPORAZOLE SODIUM) [Concomitant]
  13. MEPHYTON (PHYTOMENADIONE) [Concomitant]

REACTIONS (21)
  - BACTERIAL INFECTION [None]
  - BLOOD CULTURE POSITIVE [None]
  - BLOOD GASES ABNORMAL [None]
  - BLOOD PH INCREASED [None]
  - CARDIAC ARREST [None]
  - CARDIAC FAILURE CONGESTIVE [None]
  - CARDIOMEGALY [None]
  - CONFUSIONAL STATE [None]
  - CONGESTIVE CARDIOMYOPATHY [None]
  - ENCEPHALOPATHY [None]
  - HYPOKALAEMIA [None]
  - LABORATORY TEST INTERFERENCE [None]
  - LOSS OF CONSCIOUSNESS [None]
  - MENTAL STATUS CHANGES [None]
  - PULMONARY OEDEMA [None]
  - PUPILLARY REFLEX IMPAIRED [None]
  - PYREXIA [None]
  - RESPIRATORY FAILURE [None]
  - THROMBOCYTOPENIA [None]
  - UNRESPONSIVE TO STIMULI [None]
  - VENTRICULAR FIBRILLATION [None]
